FAERS Safety Report 4718505-2 (Version None)
Quarter: 2005Q3

REPORT INFORMATION
  Report Type: 
  Country: None (occurrence: None)
  Receive Date: 20050719
  Receipt Date: 20050513
  Transmission Date: 20060218
  Serious: Yes (Other)
  Sender: FDA-Public Use
  Company Number: 2005065882

PATIENT
  Sex: Female
  Weight: 53.5244 kg

DRUGS (7)
  1. CELEBREX [Suspect]
     Indication: OSTEOARTHRITIS
     Dosage: 400 MG (200 MG, 2 IN 1 D), ORAL
     Route: 048
  2. ALL OTHER THERAPEUTIC PRODUCTS (ALL OTHER THERAPEUTIC PRODUCTS) [Suspect]
     Indication: ILL-DEFINED DISORDER
     Route: 065
  3. GABAPENTIN (GABPENTIN) [Concomitant]
  4. NORTRIPTYLINE HCL [Concomitant]
  5. ATORVASTATIN CALCIUM [Concomitant]
  6. PANTOPRAZOLE SODIUM [Concomitant]
  7. ASPIRIN [Concomitant]

REACTIONS (5)
  - CEREBROVASCULAR ACCIDENT [None]
  - DRUG EFFECT DECREASED [None]
  - INFLAMMATION [None]
  - PAIN [None]
  - TINNITUS [None]
